FAERS Safety Report 14202928 (Version 1)
Quarter: 2017Q4

REPORT INFORMATION
  Report Type: Spontaneous
  Country: US (occurrence: None)
  Receive Date: 20171116
  Receipt Date: 20171116
  Transmission Date: 20180321
  Serious: Yes (Other)
  Sender: FDA-Public Use
  Company Number: None

PATIENT
  Age: 39 Year
  Sex: Female

DRUGS (1)
  1. VENOFER [Suspect]
     Active Substance: IRON SUCROSE
     Indication: IRON DEFICIENCY ANAEMIA
     Dosage: 300MG QW X 2W IV
     Route: 042
     Dates: start: 20170915

REACTIONS (5)
  - Joint stiffness [None]
  - Infusion related reaction [None]
  - Urticaria [None]
  - Joint swelling [None]
  - Erythema [None]

NARRATIVE: CASE EVENT DATE: 20170929
